FAERS Safety Report 4775763-6 (Version None)
Quarter: 2005Q3

REPORT INFORMATION
  Report Type: 
  Country: None (occurrence: None)
  Receive Date: 20050921
  Receipt Date: 20050906
  Transmission Date: 20060218
  Serious: Yes (Hospitalization, Other)
  Sender: FDA-Public Use
  Company Number: GXKR2005BR01546

PATIENT
  Age: 65 Year
  Sex: Female
  Weight: 70 kg

DRUGS (7)
  1. DIOVAN AMLO (VALSARTAN, AMLODIPINE) TABLET [Suspect]
     Indication: HYPERTENSION
     Dosage: 160/5MG VALSARTAN/AMLODIPINE BESYLATE, ORAL
     Route: 048
     Dates: start: 20050801
  2. VALERIANA OFFICINALIS(VALERIANA OFFICINALIS) [Suspect]
  3. NAPRIX (RAMIPRIL) [Concomitant]
  4. OMEPRAZOLE [Concomitant]
  5. FLUOXETINE HCL [Concomitant]
  6. ALPRAZOLAM [Concomitant]
  7. ATENOLOL [Concomitant]

REACTIONS (1)
  - BLOOD PRESSURE SYSTOLIC INCREASED [None]
